FAERS Safety Report 22139285 (Version 2)
Quarter: 2023Q2

REPORT INFORMATION
  Report Type: Spontaneous
  Country: RS (occurrence: RS)
  Receive Date: 20230327
  Receipt Date: 20230407
  Transmission Date: 20230722
  Serious: Yes (Other)
  Sender: FDA-Public Use
  Company Number: RS-AMGEN-SRBSP2023051366

PATIENT

DRUGS (4)
  1. NPLATE [Suspect]
     Active Substance: ROMIPLOSTIM
     Indication: Immune thrombocytopenia
     Dosage: 1 MICROGRAM PER KILOGRAM, QWK
     Route: 058
  2. NPLATE [Suspect]
     Active Substance: ROMIPLOSTIM
     Dosage: 10 MICROGRAM PER KILOGRAM, QWK
     Route: 058
  3. TRANEXAMIC ACID [Concomitant]
     Active Substance: TRANEXAMIC ACID
     Indication: Immune thrombocytopenia
     Dosage: UNK
  4. AZATHIOPRINE [Concomitant]
     Active Substance: AZATHIOPRINE
     Indication: Immune thrombocytopenia
     Dosage: UNK

REACTIONS (4)
  - Pulmonary embolism [Unknown]
  - Therapeutic product effect decreased [Unknown]
  - Obesity [Unknown]
  - Thrombocytosis [Unknown]
